FAERS Safety Report 24262545 (Version 1)
Quarter: 2024Q3

REPORT INFORMATION
  Report Type: Report from Study
  Country: PL (occurrence: PL)
  Receive Date: 20240829
  Receipt Date: 20240829
  Transmission Date: 20241016
  Serious: Yes (Life-Threatening, Hospitalization)
  Sender: MYLAN
  Company Number: PL-MYLANLABS-2024M1078646

PATIENT
  Age: 14 Year
  Sex: Female

DRUGS (15)
  1. POSACONAZOLE [Suspect]
     Active Substance: POSACONAZOLE
     Indication: Antifungal prophylaxis
     Dosage: UNK
     Route: 065
  2. CYTARABINE [Concomitant]
     Active Substance: CYTARABINE
     Indication: Acute myeloid leukaemia
     Dosage: AS A PART OF AML-BFM-2019 CHEMOTHERAPY REGIMEN
     Route: 065
  3. CYTARABINE [Concomitant]
     Active Substance: CYTARABINE
     Dosage: AS A PART OF IDA-FLA IN AML-BFM-2019 CHEMOTHERAPY REGIMEN
     Route: 065
  4. CYTARABINE [Concomitant]
     Active Substance: CYTARABINE
     Dosage: AS A PART OF FLA REGIMEN IN AML-BFM-2019 CHEMOTHERAPY REGIMEN
     Route: 065
  5. IDARUBICIN [Concomitant]
     Active Substance: IDARUBICIN
     Indication: Acute myeloid leukaemia
     Dosage: AS A PART OF AML-BFM-2019 CHEMOTHERAPY REGIMEN
     Route: 065
  6. IDARUBICIN [Concomitant]
     Active Substance: IDARUBICIN
     Dosage: AS A PART OF IDA-FLA REGIMEN IN AML-BFM-2019 CHEMOTHERAPY REGIMEN
     Route: 065
  7. ETOPOSIDE [Concomitant]
     Active Substance: ETOPOSIDE
     Indication: Acute myeloid leukaemia
     Dosage: AS A PART OF AML-BFM-2019 CHEMOTHERAPY REGIMEN
     Route: 065
  8. MITOXANTRONE [Concomitant]
     Active Substance: MITOXANTRONE HYDROCHLORIDE
     Indication: Acute myeloid leukaemia
     Dosage: AS A PART OF AML-BFM-2019 CHEMOTHERAPY REGIMEN
     Route: 065
  9. THIOGUANINE [Concomitant]
     Active Substance: THIOGUANINE
     Indication: Acute myeloid leukaemia
     Dosage: AS A PART OF AML-BFM-2019 CHEMOTHERAPY REGIMEN
     Route: 065
  10. FLUDARABINE [Concomitant]
     Active Substance: FLUDARABINE PHOSPHATE
     Indication: Acute myeloid leukaemia
     Dosage: AS A PART OF AML-BFM-2019 CHEMOTHERAPY REGIMEN
     Route: 065
  11. FLUDARABINE [Concomitant]
     Active Substance: FLUDARABINE PHOSPHATE
     Dosage: AS A PART OF IDA-FLA REGIMEN
     Route: 065
  12. FLUDARABINE [Concomitant]
     Active Substance: FLUDARABINE PHOSPHATE
     Dosage: AS A PART OF FLA REGIMEN
     Route: 065
  13. TRETINOIN [Concomitant]
     Active Substance: TRETINOIN
     Indication: Acute myeloid leukaemia
     Dosage: AS A PART OF AML-BFM-2019 CHEMOTHERAPY REGIMEN
     Route: 065
  14. GEMTUZUMAB OZOGAMICIN [Concomitant]
     Active Substance: GEMTUZUMAB OZOGAMICIN
     Indication: Acute myeloid leukaemia
     Dosage: AS A PART OF AML-BFM-2019 CHEMOTHERAPY REGIMEN
     Route: 065
  15. CLOFARABINE [Concomitant]
     Active Substance: CLOFARABINE
     Indication: Acute myeloid leukaemia
     Dosage: AS A PART OF AML-BFM-2019 CHEMOTHERAPY REGIMEN
     Route: 065

REACTIONS (1)
  - Drug ineffective [Unknown]
